FAERS Safety Report 4383222-8 (Version None)
Quarter: 2004Q2

REPORT INFORMATION
  Report Type: 
  Country: None (occurrence: None)
  Receive Date: 20040623
  Receipt Date: 20040614
  Transmission Date: 20050107
  Serious: Yes (Hospitalization)
  Sender: FDA-Public Use
  Company Number: PHBS2004AU07892

PATIENT
  Age: 49 Year
  Sex: Male

DRUGS (2)
  1. DICLOFENAC SODIUM [Suspect]
     Indication: BACK PAIN
     Route: 042
  2. IBUPROFEN [Suspect]
     Route: 042

REACTIONS (4)
  - BLOOD CREATININE INCREASED [None]
  - ENDOCARDITIS STAPHYLOCOCCAL [None]
  - OSTEOMYELITIS [None]
  - RENAL FAILURE ACUTE [None]
